FAERS Safety Report 5225147-1 (Version None)
Quarter: 2007Q1

REPORT INFORMATION
  Report Type: 
  Country: None (occurrence: None)
  Receive Date: 20070131
  Receipt Date: 20070116
  Transmission Date: 20070707
  Serious: Yes (Hospitalization)
  Sender: FDA-Public Use
  Company Number: US-AMGEN-US207310

PATIENT
  Sex: Female

DRUGS (2)
  1. ENBREL [Suspect]
     Indication: PSORIASIS
     Route: 058
     Dates: start: 20060101
  2. ENBREL [Suspect]
     Indication: ARTHRITIS

REACTIONS (2)
  - KNEE ARTHROPLASTY [None]
  - PSORIASIS [None]
